FAERS Safety Report 18888395 (Version 2)
Quarter: 2021Q1

REPORT INFORMATION
  Report Type: Report from Study
  Country: US (occurrence: US)
  Receive Date: 20210213
  Receipt Date: 20210301
  Transmission Date: 20210420
  Serious: No
  Sender: FDA-Public Use
  Company Number: US-SA-2021SA040819

PATIENT
  Age: 14 Year
  Sex: Male

DRUGS (4)
  1. DUPIXENT [Suspect]
     Active Substance: DUPILUMAB
     Dosage: 300 MG, QOW
     Route: 058
     Dates: start: 20190401
  2. DUPIXENT [Suspect]
     Active Substance: DUPILUMAB
     Indication: DERMATITIS ATOPIC
     Dosage: UNK
     Route: 058
     Dates: start: 201710
  3. VASELINE [PARAFFIN] [Concomitant]
     Active Substance: PARAFFIN
     Indication: DERMATITIS ATOPIC
     Dosage: UNK UNK, BID (TWICE A DAY AFTER SHOWER)
     Route: 061
  4. VASELINE [PARAFFIN] [Concomitant]
     Active Substance: PARAFFIN
     Indication: ECZEMA

REACTIONS (3)
  - Eczema [Not Recovered/Not Resolved]
  - Product use issue [Unknown]
  - Dermatitis atopic [Not Recovered/Not Resolved]

NARRATIVE: CASE EVENT DATE: 201710
